FAERS Safety Report 8151615-9 (Version None)
Quarter: 2012Q1

REPORT INFORMATION
  Report Type: 
  Country: None (occurrence: None)
  Receive Date: 20120220
  Receipt Date: 20120206
  Transmission Date: 20120608
  Serious: Yes (Disabling, Other)
  Sender: FDA-Public Use
  Company Number: US-ASTRAZENECA-2010SE53112

PATIENT
  Age: 58 Year
  Sex: Female
  Weight: 65.8 kg

DRUGS (14)
  1. NEXIUM [Suspect]
     Indication: DYSPEPSIA
     Route: 048
     Dates: end: 20090101
  2. NEURONTIN [Suspect]
     Indication: TRIGEMINAL NEURALGIA
     Route: 048
  3. XANAX [Concomitant]
     Indication: PANIC ATTACK
     Route: 048
  4. LISINOPRIL [Concomitant]
     Indication: HYPERTENSION
     Route: 048
  5. PRILOSEC OTC [Suspect]
     Route: 048
  6. SYMBICORT [Suspect]
     Route: 055
     Dates: start: 20100801
  7. COREG [Concomitant]
     Indication: CARDIAC DISORDER
     Route: 048
  8. PLAVIX [Concomitant]
     Indication: CARDIAC DISORDER
     Route: 048
  9. RANITIDINE [Concomitant]
     Indication: DYSPEPSIA
     Route: 048
  10. TAGAMET [Concomitant]
  11. CRESTOR [Suspect]
     Indication: BLOOD CHOLESTEROL INCREASED
     Route: 048
     Dates: start: 20070101
  12. LIPITOR [Suspect]
     Indication: BLOOD CHOLESTEROL INCREASED
     Route: 065
  13. MAGNESIUM OXIDE [Concomitant]
     Route: 048
  14. ZANTAC [Concomitant]

REACTIONS (12)
  - BLOOD CHOLESTEROL INCREASED [None]
  - MYOCARDIAL INFARCTION [None]
  - DRUG DOSE OMISSION [None]
  - GAIT DISTURBANCE [None]
  - CHRONIC OBSTRUCTIVE PULMONARY DISEASE [None]
  - PAIN IN EXTREMITY [None]
  - DYSPNOEA [None]
  - DYSPEPSIA [None]
  - TRIGEMINAL NEURALGIA [None]
  - BODY HEIGHT DECREASED [None]
  - MUSCULOSKELETAL DISCOMFORT [None]
  - OESOPHAGEAL DISORDER [None]
